FAERS Safety Report 9637378 (Version 2)
Quarter: 2013Q4

REPORT INFORMATION
  Report Type: Report from Study
  Country: TH (occurrence: TH)
  Receive Date: 20131022
  Receipt Date: 20131029
  Transmission Date: 20140711
  Serious: Yes (Death, Other)
  Sender: FDA-Public Use
  Company Number: PHHY2013TH117941

PATIENT
  Age: 67 Year
  Sex: Male
  Weight: 50.7 kg

DRUGS (3)
  1. GLIVEC [Suspect]
     Indication: GASTROINTESTINAL STROMAL TUMOUR
     Dosage: 400 MG
     Route: 048
     Dates: start: 20110617, end: 20130501
  2. GLIVEC [Suspect]
     Dosage: 600 MG
     Route: 048
     Dates: start: 20130502, end: 20130918
  3. GLIVEC [Suspect]
     Dosage: 800 MG
     Route: 048
     Dates: start: 20130919

REACTIONS (2)
  - Gastrointestinal stromal tumour [Fatal]
  - Malignant neoplasm progression [Fatal]
